FAERS Safety Report 6938959-0 (Version None)
Quarter: 2010Q3

REPORT INFORMATION
  Report Type: 
  Country: None (occurrence: None)
  Receive Date: 20100824
  Receipt Date: 20100817
  Transmission Date: 20110219
  Serious: Yes (Hospitalization)
  Sender: FDA-Public Use
  Company Number: GXKR2010DE09150

PATIENT
  Sex: Male
  Weight: 70 kg

DRUGS (1)
  1. AMOXI 1A PHARMA (NGX) [Suspect]
     Indication: BRONCHITIS
     Dosage: 1000 MG, TID
     Route: 048
     Dates: start: 20100802, end: 20100808

REACTIONS (6)
  - ATRIOVENTRICULAR BLOCK [None]
  - ATRIOVENTRICULAR BLOCK FIRST DEGREE [None]
  - ATRIOVENTRICULAR BLOCK SECOND DEGREE [None]
  - PALPITATIONS [None]
  - SINOATRIAL BLOCK [None]
  - TACHYCARDIA [None]
